FAERS Safety Report 11184358 (Version 1)
Quarter: 2015Q2

REPORT INFORMATION
  Report Type: Spontaneous
  Country: AT (occurrence: AT)
  Receive Date: 20150612
  Receipt Date: 20150612
  Transmission Date: 20150821
  Serious: Yes (Other)
  Sender: FDA-Public Use
  Company Number: AT-NOVOPROD-440870

PATIENT
  Age: 27 Year
  Sex: Female

DRUGS (3)
  1. INSULATARD FLEXPEN [Suspect]
     Active Substance: INSULIN HUMAN
     Indication: DIABETES MELLITUS
     Dosage: 6 - 16 I.E.
     Route: 065
     Dates: start: 20141230
  2. INSULATARD FLEXPEN [Suspect]
     Active Substance: INSULIN HUMAN
     Dosage: 6 - 16 I.E.
     Route: 065
  3. NOVORAPID [Suspect]
     Active Substance: INSULIN ASPART
     Indication: DIABETES MELLITUS
     Dosage: UNK
     Route: 065
     Dates: start: 20141230

REACTIONS (5)
  - Injection site granuloma [Recovering/Resolving]
  - Exposure during pregnancy [Recovered/Resolved]
  - Placenta accreta [Unknown]
  - Diabetes mellitus inadequate control [Unknown]
  - Product quality issue [Unknown]

NARRATIVE: CASE EVENT DATE: 20141230
